FAERS Safety Report 10151322 (Version 1)
Quarter: 2014Q2

REPORT INFORMATION
  Report Type: Spontaneous
  Country: US (occurrence: US)
  Receive Date: 20140502
  Receipt Date: 20140502
  Transmission Date: 20141212
  Serious: No
  Sender: FDA-Public Use
  Company Number: US-ASTRAZENECA-2013SE65027

PATIENT
  Age: 63 Year
  Sex: Female

DRUGS (3)
  1. PRILOSEC OTC [Suspect]
     Indication: OESOPHAGITIS
     Route: 048
  2. PRADAXA [Concomitant]
     Indication: ANTICOAGULANT THERAPY
     Dosage: UNKNOWN
  3. METOPROLOL [Concomitant]
     Dosage: UNKNOWN

REACTIONS (2)
  - Tendonitis [Not Recovered/Not Resolved]
  - Tendon pain [Not Recovered/Not Resolved]
